FAERS Safety Report 9105363 (Version 5)
Quarter: 2016Q2

REPORT INFORMATION
  Report Type: Report from Study
  Country: JP (occurrence: JP)
  Receive Date: 20130220
  Receipt Date: 20160526
  Transmission Date: 20160815
  Serious: Yes (Other)
  Sender: FDA-Public Use
  Company Number: JP-GLAXOSMITHKLINE-B0868024A

PATIENT
  Age: 77 Year
  Sex: Male
  Weight: 57 kg

DRUGS (8)
  1. LAMOTRIGINE. [Suspect]
     Active Substance: LAMOTRIGINE
     Indication: COMPLEX PARTIAL SEIZURES
     Dosage: 25 MG, QOD
     Route: 048
     Dates: start: 20120628, end: 20120712
  2. DEPAKENE [Suspect]
     Active Substance: VALPROIC ACID
     Indication: COMPLEX PARTIAL SEIZURES
     Dosage: 400 MG, 1D
     Route: 048
     Dates: start: 19971212, end: 20000501
  3. DEZOLAM [Suspect]
     Active Substance: ETIZOLAM
     Dosage: UNK
     Route: 048
  4. DEPAKENE [Suspect]
     Active Substance: VALPROIC ACID
     Dosage: 200 MG, 1D
     Route: 048
     Dates: start: 20000502
  5. METHYCOBAL [Suspect]
     Active Substance: METHYLCOBALAMIN
     Dosage: UNK
     Route: 048
  6. LAMOTRIGINE. [Suspect]
     Active Substance: LAMOTRIGINE
     Dosage: 25 MG, QD
     Route: 048
     Dates: start: 20120713
  7. AMOBAN [Suspect]
     Active Substance: ZOPICLONE
     Dosage: UNK
     Route: 048
  8. DOGMATYL [Suspect]
     Active Substance: SULPIRIDE
     Dosage: UNK
     Route: 048

REACTIONS (3)
  - Renal impairment [Recovered/Resolved]
  - Hyperbilirubinaemia [Recovered/Resolved]
  - Lymphocyte percentage decreased [Recovered/Resolved]

NARRATIVE: CASE EVENT DATE: 20121115
